FAERS Safety Report 7675722-X (Version None)
Quarter: 2011Q3

REPORT INFORMATION
  Report Type: 
  Country: None (occurrence: None)
  Receive Date: 20110810
  Receipt Date: 20110808
  Transmission Date: 20111222
  Serious: Yes (Other)
  Sender: FDA-Public Use
  Company Number: US-ABBOTT-11P-163-0844598-00

PATIENT
  Sex: Female
  Weight: 62.652 kg

DRUGS (6)
  1. ROWASA [Concomitant]
     Indication: COLITIS ULCERATIVE
  2. PREDNISONE [Concomitant]
     Indication: COLITIS ULCERATIVE
  3. HUMIRA [Suspect]
     Indication: COLITIS ULCERATIVE
     Dates: start: 20110721
  4. CANASA [Concomitant]
     Indication: COLITIS ULCERATIVE
  5. ASACOL [Concomitant]
     Indication: COLITIS ULCERATIVE
  6. NEXIUM [Concomitant]
     Indication: GASTROOESOPHAGEAL REFLUX DISEASE

REACTIONS (2)
  - MALAISE [None]
  - DYSPNOEA [None]
